FAERS Safety Report 13587662 (Version 1)
Quarter: 2017Q2

REPORT INFORMATION
  Report Type: Spontaneous
  Country: GB (occurrence: GB)
  Receive Date: 20170526
  Receipt Date: 20170526
  Transmission Date: 20170830
  Serious: Yes (Other)
  Sender: FDA-Public Use
  Company Number: GB-BAUSCH-BL-2017-017285

PATIENT
  Age: 72 Year
  Sex: Female

DRUGS (3)
  1. VELCADE [Suspect]
     Active Substance: BORTEZOMIB
     Indication: PLASMA CELL MYELOMA
     Route: 065
     Dates: start: 20160729
  2. CICLOSPORIN [Suspect]
     Active Substance: CYCLOSPORINE
     Indication: PLASMA CELL MYELOMA
     Route: 065
     Dates: start: 20160729
  3. DEXAMETHASONE. [Suspect]
     Active Substance: DEXAMETHASONE
     Indication: PLASMA CELL MYELOMA
     Route: 065
     Dates: start: 20160729

REACTIONS (5)
  - Haemoglobin decreased [Unknown]
  - Glomerular filtration rate decreased [Unknown]
  - Blood calcium decreased [Unknown]
  - Product use in unapproved indication [Unknown]
  - Plasma cell myeloma recurrent [Unknown]

NARRATIVE: CASE EVENT DATE: 20160729
